FAERS Safety Report 5409178-4 (Version None)
Quarter: 2007Q3

REPORT INFORMATION
  Report Type: 
  Country: None (occurrence: None)
  Receive Date: 20070713
  Receipt Date: 20070423
  Transmission Date: 20080115
  Serious: Yes (Hospitalization)
  Sender: FDA-Public Use
  Company Number: US-JNJFOC-20070101348

PATIENT
  Age: 45 Year
  Sex: Female
  Weight: 76.8847 kg

DRUGS (10)
  1. ORTHO EVRA [Suspect]
     Indication: HIRSUTISM
     Dosage: TRANSDERMAL
     Route: 062
     Dates: start: 20031101, end: 20040330
  2. ORTHO EVRA [Suspect]
     Indication: POLYCYSTIC OVARIES
     Dosage: TRANSDERMAL
     Route: 062
     Dates: start: 20031101, end: 20040330
  3. LEXAPRO [Concomitant]
  4. ATIVAN [Concomitant]
  5. ASPIRIN [Concomitant]
  6. ATENOLOL [Concomitant]
  7. KLONOPIN [Concomitant]
  8. CELEXA [Concomitant]
  9. NASONEX [Concomitant]
  10. ALLEGRA [Concomitant]

REACTIONS (3)
  - DEEP VEIN THROMBOSIS [None]
  - PULMONARY EMBOLISM [None]
  - VAGINAL HAEMORRHAGE [None]
